FAERS Safety Report 19841415 (Version 2)
Quarter: 2021Q3

REPORT INFORMATION
  Report Type: Spontaneous
  Country: US (occurrence: US)
  Receive Date: 20210915
  Receipt Date: 20210920
  Transmission Date: 20211014
  Serious: Yes (Other)
  Sender: FDA-Public Use
  Company Number: US-LUPIN PHARMACEUTICALS INC.-2021-17448

PATIENT
  Age: 61 Year
  Sex: Male

DRUGS (1)
  1. ATORVASTATIN CALCIUM. [Suspect]
     Active Substance: ATORVASTATIN CALCIUM
     Indication: PRODUCT USED FOR UNKNOWN INDICATION
     Dosage: 40 MILLIGRAM (HE HAD BEEN ATORVASTATIN 40MG SINCE PREVIOUS FOUR YEARS)
     Route: 065

REACTIONS (3)
  - Polymyositis [Recovering/Resolving]
  - Fall [Recovered/Resolved]
  - Myopathy [Recovering/Resolving]
